FAERS Safety Report 7459952-8 (Version None)
Quarter: 2011Q2

REPORT INFORMATION
  Report Type: 
  Country: None (occurrence: None)
  Receive Date: 20110505
  Receipt Date: 20110502
  Transmission Date: 20111010
  Serious: Yes (Life-Threatening, Other)
  Sender: FDA-Public Use
  Company Number: FR-PFIZER INC-2009185277

PATIENT
  Age: 71 Year
  Sex: Female

DRUGS (9)
  1. ALL OTHER THERAPEUTIC PRODUCTS [Concomitant]
     Dosage: UNK
     Dates: start: 19930101, end: 20030701
  2. ARAVA [Suspect]
     Indication: RHEUMATOID ARTHRITIS
     Route: 048
     Dates: start: 20040101, end: 20051001
  3. HUMIRA [Suspect]
     Indication: RHEUMATOID ARTHRITIS
     Dosage: 40 G, CYCLIC EVERY 15 DAYS
     Route: 058
     Dates: start: 20051001, end: 20060201
  4. SULFASALAZINE [Suspect]
     Dosage: UNK
     Dates: start: 20060201
  5. ENBREL [Suspect]
     Indication: RHEUMATOID ARTHRITIS
     Dosage: 50 MG, WEEKLY
     Route: 058
     Dates: start: 20060101, end: 20081001
  6. METHOTREXATE SODIUM [Suspect]
     Indication: RHEUMATOID ARTHRITIS
     Dosage: 7.5 MG, WEEKLY
     Route: 058
     Dates: start: 20030701, end: 20030901
  7. CORTANCYL [Concomitant]
  8. CALCIUM CARBONATE [Concomitant]
  9. SULFASALAZINE [Suspect]
     Indication: RHEUMATOID ARTHRITIS
     Dosage: 4 DOSE FORM PER DAY
     Route: 048
     Dates: start: 19930101, end: 20030701

REACTIONS (1)
  - MALIGNANT MELANOMA [None]
